FAERS Safety Report 15978697 (Version 1)
Quarter: 2019Q1

REPORT INFORMATION
  Report Type: Spontaneous
  Country: ES (occurrence: ES)
  Receive Date: 20190219
  Receipt Date: 20190219
  Transmission Date: 20190418
  Serious: Yes (Hospitalization)
  Sender: FDA-Public Use
  Company Number: ES-TEVA-2019-ES-1012704

PATIENT
  Age: 76 Year
  Sex: Male

DRUGS (10)
  1. MOXIFLOXACINO (1119A) [Suspect]
     Active Substance: MOXIFLOXACIN HYDROCHLORIDE
     Indication: BRONCHITIS
     Route: 048
     Dates: start: 20190112, end: 20190122
  2. FUROSEMIDA (1615A) [Concomitant]
     Active Substance: FUROSEMIDE
  3. VENTOLIN 100 MICROGRAMOS/INHALACI?N SUSPENSI?N PARA INHALACI?N EN ENVA [Concomitant]
  4. COLCHICINA (142A) [Concomitant]
  5. FOSTER NEXTHALER 100 MICROGRAMOS/6 MICROGRAMOS/INHALACION POLVO PARA I [Concomitant]
  6. IXIA 20 MG COMPRIMIDOS RECUBIERTOS , 28 COMPRIMIDOS [Concomitant]
  7. METFORMINA (1359A) [Concomitant]
     Active Substance: METFORMIN HYDROCHLORIDE
  8. OMEPRAZOL (2141A) [Concomitant]
     Active Substance: OMEPRAZOLE
  9. SITAGLIPTINA (8075A) [Concomitant]
     Active Substance: SITAGLIPTIN
  10. FESOTERODINA (8082A) [Concomitant]

REACTIONS (1)
  - Lip oedema [Recovered/Resolved]

NARRATIVE: CASE EVENT DATE: 20190112
